FAERS Safety Report 21192813 (Version 1)
Quarter: 2022Q3

REPORT INFORMATION
  Report Type: Spontaneous
  Country: FR (occurrence: FR)
  Receive Date: 20220810
  Receipt Date: 20220810
  Transmission Date: 20221027
  Serious: Yes (Hospitalization)
  Sender: FDA-Public Use
  Company Number: FR-SUN PHARMACEUTICAL INDUSTRIES LTD-2022RR-348153

PATIENT
  Age: 45 Year
  Sex: Female

DRUGS (5)
  1. ESOMEPRAZOLE [Suspect]
     Active Substance: ESOMEPRAZOLE
     Indication: Sciatica
     Dosage: UNK
     Route: 048
     Dates: start: 20220214, end: 20220221
  2. NAPROXEN [Suspect]
     Active Substance: NAPROXEN
     Indication: Sciatica
     Dosage: UNK
     Route: 048
     Dates: start: 20220214, end: 20220221
  3. ACETAMINOPHEN\OPIUM [Suspect]
     Active Substance: ACETAMINOPHEN\OPIUM
     Indication: Sciatica
     Dosage: UNK
     Route: 048
     Dates: start: 20220214, end: 20220217
  4. KETOPROFEN [Suspect]
     Active Substance: KETOPROFEN
     Indication: Neuralgia
     Dosage: UNK
     Route: 048
     Dates: start: 20220212, end: 20220213
  5. MIRENA 52 mg (20 microgrammes/24 heures), dispositif intra-uterin [Concomitant]
     Indication: Product used for unknown indication
     Dosage: UNK
     Route: 065

REACTIONS (2)
  - Rash maculo-papular [Recovered/Resolved]
  - Hepatitis [Recovered/Resolved]

NARRATIVE: CASE EVENT DATE: 20220219
